FAERS Safety Report 8230483-0 (Version None)
Quarter: 2012Q1

REPORT INFORMATION
  Report Type: 
  Country: None (occurrence: None)
  Receive Date: 20120323
  Receipt Date: 20120314
  Transmission Date: 20120608
  Serious: Yes (Hospitalization)
  Sender: FDA-Public Use
  Company Number: JP-SANOFI-AVENTIS-2012SA017837

PATIENT
  Age: 88 Year
  Sex: Female

DRUGS (1)
  1. GLYBURIDE [Suspect]
     Dosage: INTERNALLY
     Route: 065

REACTIONS (4)
  - RESTLESSNESS [None]
  - HEMIPLEGIA [None]
  - HYPOGLYCAEMIA [None]
  - DEPRESSED LEVEL OF CONSCIOUSNESS [None]
